FAERS Safety Report 14046468 (Version 2)
Quarter: 2018Q2

REPORT INFORMATION
  Report Type: Report from Study
  Country: US (occurrence: US)
  Receive Date: 20171005
  Receipt Date: 20180412
  Transmission Date: 20180711
  Serious: Yes (Hospitalization)
  Sender: FDA-Public Use
  Company Number: US-ACTELION-A-NJ2017-160451

PATIENT
  Age: 80 Year
  Sex: Female
  Weight: 64.4 kg

DRUGS (2)
  1. ADEMPAS [Concomitant]
     Active Substance: RIOCIGUAT
  2. UPTRAVI [Suspect]
     Active Substance: SELEXIPAG
     Indication: PULMONARY ARTERIAL HYPERTENSION
     Dosage: 1600 MCG, BID
     Route: 048

REACTIONS (7)
  - Inflammation [Unknown]
  - Systemic scleroderma [Unknown]
  - Pulmonary arterial hypertension [Unknown]
  - Rectal prolapse [Unknown]
  - Pericardial effusion [Unknown]
  - Abdominal discomfort [Unknown]
  - Pericardial excision [Unknown]
